FAERS Safety Report 10240263 (Version 1)
Quarter: 2014Q2

REPORT INFORMATION
  Report Type: Report from Study
  Country: FR (occurrence: FR)
  Receive Date: 20140617
  Receipt Date: 20140617
  Transmission Date: 20141212
  Serious: Yes (Hospitalization, Other)
  Sender: FDA-Public Use
  Company Number: PHHY2014FR073809

PATIENT
  Age: 86 Year
  Sex: Female

DRUGS (4)
  1. ICL670A [Suspect]
     Indication: SERUM FERRITIN INCREASED
     Dosage: 1000 MG, DAILY
     Route: 048
     Dates: start: 20130522
  2. CARDENSIEL [Concomitant]
     Dosage: 10 MG, QD
  3. RAMIPRIL [Concomitant]
     Dosage: 5 MG, QD
  4. LEVOTHYROX [Concomitant]
     Dosage: 75 UG, QD

REACTIONS (3)
  - Femur fracture [Recovered/Resolved]
  - Fall [Unknown]
  - Vitamin D deficiency [Unknown]
